FAERS Safety Report 5259648-7 (Version None)
Quarter: 2007Q1

REPORT INFORMATION
  Report Type: 
  Country: None (occurrence: None)
  Receive Date: 20070309
  Receipt Date: 20070228
  Transmission Date: 20070707
  Serious: Yes (Life-Threatening, Other)
  Sender: FDA-Public Use
  Company Number: JP-JNJFOC-20061102634

PATIENT
  Sex: Female
  Weight: 50 kg

DRUGS (13)
  1. REMICADE [Suspect]
     Route: 042
  2. REMICADE [Suspect]
     Indication: RHEUMATOID ARTHRITIS
     Route: 042
  3. SELBEX [Suspect]
     Indication: PROPHYLAXIS AGAINST GASTROINTESTINAL ULCER
     Route: 048
  4. RHEUMATREX [Suspect]
     Dosage: 6MG/W
     Route: 048
  5. RHEUMATREX [Suspect]
     Indication: RHEUMATOID ARTHRITIS
     Dosage: 6MG/W
     Route: 048
  6. BENET [Suspect]
     Indication: OSTEOPOROSIS
     Route: 048
  7. FASTIC [Suspect]
     Indication: DIABETES MELLITUS
     Route: 048
  8. PREDONINE [Suspect]
     Indication: RHEUMATOID ARTHRITIS
     Dosage: DOSE: 20 TO 7.5 MG/DAY
     Route: 048
  9. ENDOXAN-P [Suspect]
     Indication: RHEUMATOID ARTHRITIS
     Route: 048
  10. LOXONIN [Concomitant]
     Indication: RHEUMATOID ARTHRITIS
     Route: 048
  11. FOLIAMIN [Concomitant]
     Route: 048
  12. STEROID NOS [Concomitant]
     Route: 065
  13. ADRENAL HORMONE PREPARATION [Concomitant]
     Indication: PLATELET COUNT DECREASED
     Route: 065

REACTIONS (2)
  - DIFFUSE LARGE B-CELL LYMPHOMA [None]
  - PANCYTOPENIA [None]
